FAERS Safety Report 7192292-3 (Version None)
Quarter: 2010Q4

REPORT INFORMATION
  Report Type: 
  Country: None (occurrence: None)
  Receive Date: 20101223
  Receipt Date: 20101215
  Transmission Date: 20110411
  Serious: Yes (Hospitalization)
  Sender: FDA-Public Use
  Company Number: US-ACTELION-A-US2010-42769

PATIENT

DRUGS (2)
  1. BOSENTAN TABLET UNKNOWN US MG [Suspect]
     Indication: PULMONARY ARTERIAL HYPERTENSION
     Dosage: UNK
     Route: 048
     Dates: start: 20060317
  2. TADALAFIL [Concomitant]

REACTIONS (4)
  - BRONCHITIS [None]
  - DYSPNOEA [None]
  - PNEUMONIA [None]
  - PULMONARY OEDEMA [None]
